FAERS Safety Report 5374640-X (Version None)
Quarter: 2007Q2

REPORT INFORMATION
  Report Type: 
  Country: None (occurrence: None)
  Receive Date: 20070625
  Receipt Date: 20070330
  Transmission Date: 20071010
  Serious: No
  Sender: FDA-Public Use
  Company Number: 07P-163-0358005-00

PATIENT
  Age: 66 Year
  Sex: Female
  Weight: 115 kg

DRUGS (15)
  1. HUMIRA [Suspect]
     Indication: RHEUMATOID ARTHRITIS
     Dosage: 40 MG, 1 IN 2 WK, SUBCUTANEOUS
     Route: 058
     Dates: start: 20050927, end: 20060901
  2. HUMIRA [Suspect]
     Indication: RHEUMATOID ARTHRITIS
     Dosage: 40 MG, 1 IN 2 WK, SUBCUTANEOUS
     Route: 058
     Dates: start: 20060901, end: 20070124
  3. METHOTREXATE SODIUM [Concomitant]
  4. BENICAR [Concomitant]
  5. VICODIN [Concomitant]
  6. SITREX [Concomitant]
  7. METOPROLOL SUCCINATE [Concomitant]
  8. AMLODIPINE BESYLATE [Concomitant]
  9. FUROSEMIDE [Concomitant]
  10. ZOCOR [Concomitant]
  11. POTASSIUM CHLORIDE [Concomitant]
  12. PREDNISONE [Concomitant]
  13. RABEPRAZOLE SODIUM [Concomitant]
  14. ALPRAZOLAM [Concomitant]
  15. FOLIC ACID [Concomitant]

REACTIONS (12)
  - BASAL CELL CARCINOMA [None]
  - BURNING SENSATION [None]
  - ERYTHEMA [None]
  - HYPERAESTHESIA [None]
  - INJECTION SITE PAIN [None]
  - PARAESTHESIA [None]
  - PRURITUS [None]
  - RASH [None]
  - SENSORY LOSS [None]
  - TEMPERATURE INTOLERANCE [None]
  - VISION BLURRED [None]
  - VITREOUS FLOATERS [None]
